FAERS Safety Report 11050216 (Version 2)
Quarter: 2015Q2

REPORT INFORMATION
  Report Type: Report from Study
  Country: US (occurrence: US)
  Receive Date: 20150421
  Receipt Date: 20150423
  Transmission Date: 20150821
  Serious: No
  Sender: FDA-Public Use
  Company Number: US-ASTRAZENECA-2015SE28207

PATIENT
  Sex: Female

DRUGS (1)
  1. BRILINTA [Suspect]
     Active Substance: TICAGRELOR
     Indication: ACUTE CORONARY SYNDROME
     Route: 048

REACTIONS (6)
  - Contusion [Unknown]
  - Insomnia [Unknown]
  - Renal disorder [Unknown]
  - Malaise [Unknown]
  - Ear discomfort [Unknown]
  - Gastrointestinal disorder [Unknown]
